FAERS Safety Report 4884932-6 (Version None)
Quarter: 2006Q1

REPORT INFORMATION
  Report Type: 
  Country: None (occurrence: None)
  Receive Date: 20060119
  Receipt Date: 20060113
  Transmission Date: 20060701
  Serious: Yes (Life-Threatening)
  Sender: FDA-Public Use
  Company Number: 2006GB00036

PATIENT
  Age: 59 Year
  Sex: Male

DRUGS (1)
  1. ZOLADEX [Suspect]
     Indication: PROSTATE CANCER
     Dosage: 3 MONTHLY
     Route: 058
     Dates: start: 20010101

REACTIONS (2)
  - MALIGNANT MELANOMA [None]
  - MOTOR NEURONE DISEASE [None]
